FAERS Safety Report 23517533 (Version 1)
Quarter: 2024Q1

REPORT INFORMATION
  Report Type: Spontaneous
  Country: AU (occurrence: AU)
  Receive Date: 20240213
  Receipt Date: 20240213
  Transmission Date: 20240410
  Serious: Yes (Other)
  Sender: FDA-Public Use
  Company Number: AU-AMERICAN REGENT INC-2024000454

PATIENT
  Age: 66 Year
  Sex: Female

DRUGS (2)
  1. FERINJECT [Suspect]
     Active Substance: FERRIC CARBOXYMALTOSE
     Indication: Product used for unknown indication
     Dosage: UNK
  2. FERINJECT [Suspect]
     Active Substance: FERRIC CARBOXYMALTOSE
     Dosage: 1000 MILLIGRAM (20 ML) DILUTED IN 250 ML OF UNSPECIFIED DILUENT
     Dates: start: 20231112, end: 20231112

REACTIONS (1)
  - Fishbane reaction [Unknown]

NARRATIVE: CASE EVENT DATE: 20231113
